FAERS Safety Report 18713337 (Version 1)
Quarter: 2021Q1

REPORT INFORMATION
  Report Type: Spontaneous
  Country: NZ (occurrence: NZ)
  Receive Date: 20210107
  Receipt Date: 20210107
  Transmission Date: 20210419
  Serious: Yes (Life-Threatening, Other)
  Sender: FDA-Public Use
  Company Number: NZ-SA-2021SA002608

PATIENT

DRUGS (2)
  1. ENOXAPARIN SODIUM. [Suspect]
     Active Substance: ENOXAPARIN SODIUM
     Indication: DEEP VEIN THROMBOSIS
     Dosage: UNK UNK, QD
     Route: 058
     Dates: start: 20160503, end: 20160515
  2. DABIGATRAN [Suspect]
     Active Substance: DABIGATRAN
     Dosage: UNK UNK, QD
     Route: 048
     Dates: start: 20160510, end: 20160513

REACTIONS (2)
  - Acute kidney injury [Unknown]
  - Intra-abdominal haemorrhage [Unknown]

NARRATIVE: CASE EVENT DATE: 20160515
